FAERS Safety Report 4822445-8 (Version None)
Quarter: 2005Q4

REPORT INFORMATION
  Report Type: 
  Country: None (occurrence: None)
  Receive Date: 20051108
  Receipt Date: 20051024
  Transmission Date: 20060501
  Serious: Yes (Other)
  Sender: FDA-Public Use
  Company Number: 2005AC01678

PATIENT
  Age: 81 Year
  Sex: Male
  Weight: 69 kg

DRUGS (10)
  1. LIDOCAINE [Suspect]
     Indication: ANAESTHESIA
     Route: 008
  2. BUPIVACAINE [Suspect]
     Indication: ANAESTHESIA
     Dosage: TWO 5 ML BOLUSES OF 0.125% BUPIVACAINE PLUS 5UG/ML OF FENTANYL
     Route: 008
  3. BUPIVACAINE [Suspect]
     Dosage: 4 HOURS: 0.125% BUPIVACAINE PLUS 5UG/ML OF FENTANYL
     Route: 008
  4. BUPIVACAINE [Suspect]
     Dosage: 0.125% BUPIVACAINE PLUS 2 UG/ML FENTANYL
     Route: 008
  5. BUPIVACAINE [Suspect]
     Dosage: 0.125% BUPIVACAINE PLUS 2 UG/ML FENTANYL
     Route: 008
  6. FENTANYL [Suspect]
     Indication: ANAESTHESIA
     Dosage: 4 HOURS: TWO 5 ML BOLUSES OF 0.125% BUPIVACAINE PLUS 5UG/ML OF FENTANYL
     Route: 008
  7. FENTANYL [Suspect]
     Dosage: DOSE LOWERED POSTOPERTAIVE DAY 1 DUE TO MEDICATION ERROR.
     Route: 008
  8. FENTANYL [Suspect]
     Dosage: RATE LOWERED POSTOPERATIVE DAY 2.
     Route: 008
  9. FENTANYL [Suspect]
     Dosage: RATE LOWERED POSTOPERATIVE DAY 3. STOPPED POSTOPERATIVE DAY 4.
     Route: 008
  10. MIDAZOLAM [Concomitant]

REACTIONS (7)
  - DEPRESSED LEVEL OF CONSCIOUSNESS [None]
  - HAEMATOMA [None]
  - HYPOTENSION [None]
  - INCORRECT DOSE ADMINISTERED [None]
  - MONOPLEGIA [None]
  - SPINAL CORD OEDEMA [None]
  - SPINAL HAEMATOMA [None]
